FAERS Safety Report 4684242-6 (Version None)
Quarter: 2005Q2

REPORT INFORMATION
  Report Type: 
  Country: None (occurrence: None)
  Receive Date: 20050607
  Receipt Date: 20050513
  Transmission Date: 20051028
  Serious: Yes (Hospitalization, Other)
  Sender: FDA-Public Use
  Company Number: PHBS2005BE06897

PATIENT
  Age: 84 Year
  Sex: Female

DRUGS (4)
  1. ZOMETA [Suspect]
     Indication: MULTIPLE MYELOMA
     Dosage: 4 MG, ONCE/SINGLE
     Route: 042
     Dates: start: 20030402, end: 20030402
  2. ZOMETA [Suspect]
     Dosage: 4 MG, ONCE/SINGLE
     Route: 042
     Dates: start: 20030703, end: 20030703
  3. ZOMETA [Suspect]
     Dosage: 4 MG, ONCE/SINGLE
     Route: 042
     Dates: start: 20031001, end: 20031001
  4. ZOMETA [Suspect]
     Dosage: 4 MG, ONCE/SINGLE
     Route: 042
     Dates: start: 20040407, end: 20040407

REACTIONS (6)
  - ABSCESS DRAINAGE [None]
  - BACK PAIN [None]
  - CELLULITIS [None]
  - OSTEOMYELITIS [None]
  - OSTEONECROSIS [None]
  - SUBCUTANEOUS ABSCESS [None]
